FAERS Safety Report 4922185-0 (Version None)
Quarter: 2006Q1

REPORT INFORMATION
  Report Type: 
  Country: None (occurrence: None)
  Receive Date: 20060224
  Receipt Date: 20051005
  Transmission Date: 20060701
  Serious: Yes (Disabling)
  Sender: FDA-Public Use
  Company Number: US-MERCK-0510USA05911

PATIENT
  Sex: Female

DRUGS (3)
  1. VIOXX [Suspect]
     Indication: PAIN
     Route: 048
  2. BEXTRA [Suspect]
     Route: 065
  3. CELEBREX [Suspect]
     Route: 065

REACTIONS (10)
  - ACTIVITIES OF DAILY LIVING IMPAIRED [None]
  - CHEST PAIN [None]
  - DEPRESSION [None]
  - DIFFICULTY IN WALKING [None]
  - DYSPNOEA [None]
  - FATIGUE [None]
  - LIVER DISORDER [None]
  - OEDEMA PERIPHERAL [None]
  - PERIPHERAL EMBOLISM [None]
  - TACHYCARDIA [None]
